FAERS Safety Report 9248331 (Version 1)
Quarter: 2013Q2

REPORT INFORMATION
  Report Type: Spontaneous
  Country: US (occurrence: US)
  Receive Date: 20130423
  Receipt Date: 20130423
  Transmission Date: 20140414
  Serious: No
  Sender: FDA-Public Use
  Company Number: US-ROXANE LABORATORIES, INC.-2013-RO-00640RO

PATIENT
  Sex: Female

DRUGS (2)
  1. METHADONE [Suspect]
     Indication: COELIAC DISEASE
  2. OXYCODONE [Concomitant]
     Indication: COELIAC DISEASE

REACTIONS (2)
  - Alopecia [Unknown]
  - Hypersomnia [Unknown]
